FAERS Safety Report 14549581 (Version 2)
Quarter: 2018Q2

REPORT INFORMATION
  Report Type: Spontaneous
  Country: US (occurrence: US)
  Receive Date: 20180219
  Receipt Date: 20180413
  Transmission Date: 20180711
  Serious: Yes (Other)
  Sender: FDA-Public Use
  Company Number: US-GLAXOSMITHKLINE-US2018026708

PATIENT
  Sex: Female

DRUGS (13)
  1. ASPIRIN. [Concomitant]
     Active Substance: ASPIRIN
  2. MELOXICAM. [Concomitant]
     Active Substance: MELOXICAM
  3. ZYRTEC [Concomitant]
     Active Substance: CETIRIZINE HYDROCHLORIDE
  4. CITALOPRAM [Concomitant]
     Active Substance: CITALOPRAM HYDROBROMIDE
  5. LOSARTAN. [Concomitant]
     Active Substance: LOSARTAN
  6. METOPROLOL ER [Concomitant]
     Active Substance: METOPROLOL SUCCINATE
  7. RANITIDINE. [Concomitant]
     Active Substance: RANITIDINE
  8. EPINEPHRINE. [Concomitant]
     Active Substance: EPINEPHRINE
  9. NEURONTIN [Concomitant]
     Active Substance: GABAPENTIN
  10. VITAMIN D3 [Concomitant]
     Active Substance: CHOLECALCIFEROL
  11. FUROSEMIDE. [Concomitant]
     Active Substance: FUROSEMIDE
  12. NUCALA [Suspect]
     Active Substance: MEPOLIZUMAB
     Indication: EOSINOPHILIC GRANULOMATOSIS WITH POLYANGIITIS
     Dosage: UNK UNK, CYC
     Route: 058
     Dates: start: 201711
  13. FLONASE [Concomitant]
     Active Substance: FLUTICASONE PROPIONATE

REACTIONS (15)
  - Sinusitis [Unknown]
  - Hypersomnia [Unknown]
  - Oral mucosal eruption [Unknown]
  - Drug dose omission [Unknown]
  - Coccydynia [Unknown]
  - Influenza like illness [Recovered/Resolved]
  - Ear infection [Recovered/Resolved]
  - Nasal congestion [Unknown]
  - Fatigue [Not Recovered/Not Resolved]
  - Back pain [Not Recovered/Not Resolved]
  - Headache [Not Recovered/Not Resolved]
  - Dysstasia [Unknown]
  - Cellulitis [Recovered/Resolved]
  - Influenza [Recovered/Resolved]
  - Discomfort [Unknown]
